FAERS Safety Report 5385096-5 (Version None)
Quarter: 2007Q3

REPORT INFORMATION
  Report Type: 
  Country: None (occurrence: None)
  Receive Date: 20070705
  Receipt Date: 20070705
  Transmission Date: 20080115
  Serious: Yes (Other)
  Sender: FDA-Public Use
  Company Number: None

PATIENT
  Age: 74 Year
  Sex: Female

DRUGS (1)
  1. FENTANYL TRANSDERMAL SYSTEM [Suspect]
     Indication: PAIN MANAGEMENT
     Dosage: CHANGE 1 PATCH EVERY 72 HOURS
     Dates: start: 20070413, end: 20070505

REACTIONS (1)
  - PHARMACEUTICAL PRODUCT COMPLAINT [None]
